FAERS Safety Report 20673352 (Version 1)
Quarter: 2022Q2

REPORT INFORMATION
  Report Type: Spontaneous
  Country: FR (occurrence: FR)
  Receive Date: 20220405
  Receipt Date: 20220405
  Transmission Date: 20220720
  Serious: Yes (Death)
  Sender: FDA-Public Use
  Company Number: None

PATIENT
  Age: 59 Year
  Sex: Male
  Weight: 81.3 kg

DRUGS (6)
  1. CISPLATIN [Suspect]
     Active Substance: CISPLATIN
     Indication: Lung neoplasm malignant
     Dosage: 120 MILLIGRAM
     Route: 042
     Dates: start: 20210916, end: 20211102
  2. KEYTRUDA [Suspect]
     Active Substance: PEMBROLIZUMAB
     Indication: Lung neoplasm malignant
     Dosage: 200 MILLIGRAM
     Route: 042
     Dates: start: 20210916, end: 20211102
  3. ALIMTA [Suspect]
     Active Substance: PEMETREXED DISODIUM
     Indication: Lung neoplasm malignant
     Dosage: 800 MILLIGRAM
     Route: 042
     Dates: start: 20210916, end: 20211102
  4. METHYLPREDNISOLONE [Concomitant]
     Active Substance: METHYLPREDNISOLONE
     Dosage: UNK
  5. HALDOL [Concomitant]
     Active Substance: HALOPERIDOL
     Dosage: UNK
  6. APREPITANT [Concomitant]
     Active Substance: APREPITANT
     Dosage: UNK

REACTIONS (2)
  - Hypokalaemia [Fatal]
  - Enteritis [Fatal]

NARRATIVE: CASE EVENT DATE: 20211115
